FAERS Safety Report 6658114-1 (Version None)
Quarter: 2010Q1

REPORT INFORMATION
  Report Type: 
  Country: None (occurrence: None)
  Receive Date: 20100330
  Receipt Date: 20100318
  Transmission Date: 20100710
  Serious: Yes (Hospitalization, Other)
  Sender: FDA-Public Use
  Company Number: US-ELI_LILLY_AND_COMPANY-US201003005005

PATIENT
  Sex: Male
  Weight: 119.73 kg

DRUGS (10)
  1. BYETTA [Suspect]
     Indication: TYPE 2 DIABETES MELLITUS
     Dosage: 5 UG, 2/D
     Route: 058
     Dates: start: 20081001
  2. BYETTA [Suspect]
     Dosage: 10 UG, 2/D
     Route: 058
     Dates: end: 20091201
  3. BYETTA [Suspect]
     Dosage: 10 UG, 2/D
     Dates: start: 20091201
  4. ASPIRIN [Concomitant]
     Dosage: 81 MG, DAILY (1/D)
  5. ATENOLOL [Concomitant]
     Dosage: 50 MG, DAILY (1/D)
  6. LISINOPRIL [Concomitant]
     Dosage: 5 MG, DAILY (1/D)
  7. GLIMEPIRIDE [Concomitant]
     Dosage: 1 MG, DAILY (1/D)
  8. SIMVASTATIN [Concomitant]
     Indication: BLOOD CHOLESTEROL
     Dosage: 20 MG, DAILY (1/D)
  9. SIMVASTATIN [Concomitant]
     Dosage: 40 MG, DAILY (1/D)
  10. MULTI-VITAMIN [Concomitant]
     Dosage: UNK, DAILY (1/D)

REACTIONS (5)
  - BLOOD GLUCOSE INCREASED [None]
  - CEREBROVASCULAR ACCIDENT [None]
  - DEPRESSION [None]
  - FALL [None]
  - MOBILITY DECREASED [None]
